FAERS Safety Report 10264366 (Version 3)
Quarter: 2014Q3

REPORT INFORMATION
  Report Type: Spontaneous
  Country: CO (occurrence: CO)
  Receive Date: 20140627
  Receipt Date: 20140814
  Transmission Date: 20150326
  Serious: Yes (Hospitalization, Other)
  Sender: FDA-Public Use
  Company Number: BR-AMGEN-BRASP2014047916

PATIENT
  Age: 43 Year
  Sex: Female

DRUGS (6)
  1. IGG [Concomitant]
     Active Substance: HUMAN IMMUNOGLOBULIN G
  2. ELTROMBOPAG [Concomitant]
     Active Substance: ELTROMBOPAG
  3. METHYLPREDISOLONE [Concomitant]
     Active Substance: METHYLPREDNISOLONE
  4. NPLATE [Suspect]
     Active Substance: ROMIPLOSTIM
     Indication: IMMUNE THROMBOCYTOPENIC PURPURA
     Dosage: 2 MUG/KG,(FOR 12 CIRCLES) UNK
     Route: 065
     Dates: start: 201401, end: 201403
  5. ZANTAC [Concomitant]
     Active Substance: RANITIDINE HYDROCHLORIDE
  6. DANAZOL. [Concomitant]
     Active Substance: DANAZOL

REACTIONS (6)
  - Cerebrovascular accident [Unknown]
  - Central nervous system lesion [Unknown]
  - Subdural haematoma [Unknown]
  - Immune thrombocytopenic purpura [Unknown]
  - Platelet count decreased [Unknown]
  - Hemiparesis [Unknown]
